FAERS Safety Report 25433984 (Version 1)
Quarter: 2025Q2

REPORT INFORMATION
  Report Type: Spontaneous
  Country: GB (occurrence: None)
  Receive Date: 20250613
  Receipt Date: 20250613
  Transmission Date: 20250716
  Serious: Yes (Life-Threatening)
  Sender: B. BRAUN MEDICAL INC.
  Company Number: GB-B. Braun Medical Inc.-GB-BBM-202502226

PATIENT
  Age: 45 Year
  Sex: Male

DRUGS (2)
  1. ACETAMINOPHEN [Suspect]
     Active Substance: ACETAMINOPHEN
     Dosage: 1 G FOUR TIMES A DAY ORAL
     Dates: start: 20250609, end: 20250609
  2. STREPTOKINASE [Concomitant]
     Active Substance: STREPTOKINASE
     Dates: start: 20250227, end: 20250523

REACTIONS (1)
  - Abdominal pain [Recovered/Resolved]
